FAERS Safety Report 22175110 (Version 6)
Quarter: 2025Q3

REPORT INFORMATION
  Report Type: Spontaneous
  Country: EU (occurrence: EU)
  Receive Date: 20230405
  Receipt Date: 20250824
  Transmission Date: 20251021
  Serious: Yes (Other)
  Sender: AUROBINDO
  Company Number: EU-PFIZER INC-202300124496

PATIENT
  Age: 11 Year
  Sex: Male

DRUGS (21)
  1. VORICONAZOLE [Suspect]
     Active Substance: VORICONAZOLE
     Indication: Fusarium infection
     Route: 048
  2. VORICONAZOLE [Suspect]
     Active Substance: VORICONAZOLE
     Indication: Microsporum infection
     Route: 061
  3. TERBINAFINE [Suspect]
     Active Substance: TERBINAFINE
     Indication: Fusarium infection
     Route: 065
  4. TERBINAFINE [Suspect]
     Active Substance: TERBINAFINE
     Indication: Microsporum infection
  5. TERBINAFINE [Suspect]
     Active Substance: TERBINAFINE
     Indication: Off label use
  6. CHLORHEXIDINE [Suspect]
     Active Substance: CHLORHEXIDINE
     Indication: Fusarium infection
     Route: 061
  7. AMPHOTERICIN B [Suspect]
     Active Substance: AMPHOTERICIN B
     Indication: Fusarium infection
     Route: 061
  8. AMPHOTERICIN B [Suspect]
     Active Substance: AMPHOTERICIN B
     Route: 003
  9. AMPHOTERICIN B [Suspect]
     Active Substance: AMPHOTERICIN B
     Route: 042
  10. AMPHOTERICIN B [Suspect]
     Active Substance: AMPHOTERICIN B
     Indication: Fusarium infection
     Route: 042
  11. AMPHOTERICIN B [Suspect]
     Active Substance: AMPHOTERICIN B
     Indication: Off label use
  12. GENTIAN VIOLET [Concomitant]
     Active Substance: GENTIAN VIOLET
     Indication: Fusarium infection
     Route: 061
  13. IMIQUIMOD [Concomitant]
     Active Substance: IMIQUIMOD
     Indication: Fusarium infection
     Route: 061
  14. Methylrosanilinium chloride [Concomitant]
     Indication: Fusarium infection
     Route: 065
  15. NYSTATIN [Concomitant]
     Active Substance: NYSTATIN
     Indication: Fusarium infection
     Route: 061
  16. POLIHEXANIDE HYDROCHLORIDE [Concomitant]
     Active Substance: POLIHEXANIDE HYDROCHLORIDE
     Indication: Fusarium infection
     Route: 061
  17. POSACONAZOLE [Concomitant]
     Active Substance: POSACONAZOLE
     Indication: Fusarium infection
     Route: 065
  18. SILVER SULFADIAZINE [Concomitant]
     Active Substance: SILVER SULFADIAZINE
     Indication: Fusarium infection
     Route: 061
  19. ITRACONAZOLE [Concomitant]
     Active Substance: ITRACONAZOLE
     Indication: Microsporum infection
     Route: 065
  20. ISAVUCONAZOLE [Concomitant]
     Active Substance: ISAVUCONAZOLE
     Indication: Product used for unknown indication
     Route: 065
  21. CASPOFUNGIN [Concomitant]
     Active Substance: CASPOFUNGIN
     Indication: Product used for unknown indication
     Route: 065

REACTIONS (8)
  - Hallucination [Unknown]
  - Pathogen resistance [Unknown]
  - Drug resistance [Unknown]
  - Treatment failure [Unknown]
  - Intentional product use issue [Unknown]
  - Off label use [Unknown]
  - Therapeutic product effect incomplete [Unknown]
  - Drug ineffective [Unknown]
